FAERS Safety Report 6151238-7 (Version None)
Quarter: 2009Q2

REPORT INFORMATION
  Report Type: 
  Country: None (occurrence: None)
  Receive Date: 20090410
  Receipt Date: 20090402
  Transmission Date: 20091009
  Serious: Yes (Hospitalization)
  Sender: FDA-Public Use
  Company Number: US-BRISTOL-MYERS SQUIBB COMPANY-14387468

PATIENT
  Age: 70 Year
  Sex: Female
  Weight: 57 kg

DRUGS (15)
  1. DASATINIB [Suspect]
     Indication: NON-HODGKIN'S LYMPHOMA
     Dosage: INTRRUPTED ON 23JAN09.
     Route: 048
     Dates: start: 20081014
  2. ATROPINE [Concomitant]
     Route: 048
  3. OS-CAL [Concomitant]
     Route: 048
  4. VOLTAREN [Concomitant]
     Route: 048
  5. MULTI-VITAMINS [Concomitant]
  6. ASCORBIC ACID [Concomitant]
     Route: 048
  7. LASIX [Concomitant]
     Route: 048
  8. ALDACTONE [Concomitant]
     Route: 048
  9. VICODIN [Concomitant]
     Indication: PAIN
  10. POTASSIUM CHLORIDE [Concomitant]
     Route: 048
  11. NYSTATIN [Concomitant]
  12. CALCIUM + VITAMIN D [Concomitant]
  13. LOMOTIL [Concomitant]
  14. EFFEXOR [Concomitant]
  15. XANAX [Concomitant]
     Indication: ANXIETY

REACTIONS (2)
  - SKIN GRAFT FAILURE [None]
  - SKIN ULCER [None]
